FAERS Safety Report 13746435 (Version 1)
Quarter: 2017Q3

REPORT INFORMATION
  Report Type: Spontaneous
  Country: GB (occurrence: GB)
  Receive Date: 20170712
  Receipt Date: 20170712
  Transmission Date: 20171127
  Serious: Yes (Hospitalization)
  Sender: FDA-Public Use
  Company Number: GB-FERRINGPH-2017FE03177

PATIENT

DRUGS (2)
  1. PICOLAX (MAGNESIUM CITRATE/SODIUM PICOSULFATE) [Suspect]
     Active Substance: MAGNESIUM CITRATE\SODIUM PICOSULFATE
     Indication: BOWEL PREPARATION
     Dosage: 1 SACHET
     Route: 065
  2. MESALAZINE [Suspect]
     Active Substance: MESALAMINE
     Indication: CROHN^S DISEASE
     Dosage: UNK
     Route: 065

REACTIONS (3)
  - Incisional hernia [None]
  - Intentional underdose [Recovered/Resolved]
  - Pancreatitis relapsing [Recovered/Resolved]
